FAERS Safety Report 14364320 (Version 1)
Quarter: 2018Q1

REPORT INFORMATION
  Report Type: Spontaneous
  Country: US (occurrence: US)
  Receive Date: 20180108
  Receipt Date: 20180108
  Transmission Date: 20180509
  Serious: No
  Sender: FDA-Public Use
  Company Number: US-SUNOVION-2017SUN005533

PATIENT
  Age: 68 Year

DRUGS (2)
  1. LAMICTAL [Suspect]
     Active Substance: LAMOTRIGINE
     Dosage: 200 MG, UNK
  2. APTIOM [Suspect]
     Active Substance: ESLICARBAZEPINE ACETATE
     Indication: POST STROKE EPILEPSY
     Dosage: 400 MG, UNK
     Route: 048

REACTIONS (2)
  - Aphasia [Unknown]
  - Balance disorder [Unknown]
